FAERS Safety Report 16099841 (Version 1)
Quarter: 2019Q2

REPORT INFORMATION
  Report Type: Spontaneous
  Country: US (occurrence: US)
  Receive Date: 20190320
  Receipt Date: 20190320
  Transmission Date: 20190711
  Serious: Yes (Disabling)
  Sender: FDA-Public Use
  Company Number: None

PATIENT
  Age: 35 Year
  Sex: Female
  Weight: 65.7 kg

DRUGS (4)
  1. LEVOTHYROXINE 137MCG, [Concomitant]
  2. CETERIZINE 10MG [Concomitant]
  3. VALACYCLOVIR [Suspect]
     Active Substance: VALACYCLOVIR HYDROCHLORIDE
     Indication: ORAL HERPES
     Dosage: ?          QUANTITY:1 TABLET(S);?
     Route: 048
     Dates: start: 20110101, end: 20190313
  4. TRAZADONE 50MG [Concomitant]

REACTIONS (7)
  - Oedema peripheral [None]
  - Flank pain [None]
  - Fatigue [None]
  - Yellow skin [None]
  - Renal impairment [None]
  - Glomerular filtration rate increased [None]
  - Myalgia [None]

NARRATIVE: CASE EVENT DATE: 20180925
